FAERS Safety Report 5973522-X (Version None)
Quarter: 2008Q4

REPORT INFORMATION
  Report Type: 
  Country: None (occurrence: None)
  Receive Date: 20081201
  Receipt Date: 20081117
  Transmission Date: 20090506
  Serious: Yes (Other)
  Sender: FDA-Public Use
  Company Number: US-AVENTIS-200817857US

PATIENT
  Age: 58 Year
  Sex: Male

DRUGS (5)
  1. TRENTAL [Suspect]
     Indication: THROMBOSIS PROPHYLAXIS
     Dosage: DOSE: 200-400
  2. ANGIOMAX [Suspect]
     Indication: THROMBOSIS PROPHYLAXIS
     Dosage: DOSE: 0.005-0.02 MG/KG/HR
     Route: 042
  3. ASPIRIN [Suspect]
     Indication: THROMBOSIS PROPHYLAXIS
     Dosage: DOSE: 81-162
  4. DIPYRIDAMOLE [Suspect]
     Indication: THROMBOSIS PROPHYLAXIS
     Dosage: DOSE: 75-300
  5. WARFARIN SODIUM [Suspect]
     Indication: THROMBOSIS PROPHYLAXIS
     Dosage: DOSE: 2-7.5

REACTIONS (2)
  - DEEP VEIN THROMBOSIS [None]
  - GASTROINTESTINAL DISORDER [None]
